FAERS Safety Report 8443800-3 (Version None)
Quarter: 2012Q2

REPORT INFORMATION
  Report Type: 
  Country: None (occurrence: None)
  Receive Date: 20120323
  Receipt Date: 20110527
  Transmission Date: 20120825
  Serious: Yes (Hospitalization)
  Sender: FDA-Public Use
  Company Number: 163-21880-11052745

PATIENT
  Age: 86 Year
  Sex: Female
  Weight: 49.8957 kg

DRUGS (11)
  1. REVLIMID [Suspect]
     Indication: MULTIPLE MYELOMA
     Dosage: 10 MG, DAILY DAYS 1-21 EVERY 28 DAYS, PO
     Route: 048
     Dates: start: 20110505, end: 20110517
  2. REVLIMID [Suspect]
     Indication: MULTIPLE MYELOMA
     Dosage: 10 MG, DAILY DAYS 1-21 EVERY 28 DAYS, PO
     Route: 048
     Dates: start: 20110519
  3. CALCIUM CARBONATE [Concomitant]
  4. FUROSEMIDE [Concomitant]
  5. LEVAQUIN [Concomitant]
  6. LISINOPRIL [Concomitant]
  7. OXYCONTIN [Concomitant]
  8. CITRACAL + D (CITRACAL + D) [Concomitant]
  9. METOPROLOL TARTRATE [Concomitant]
  10. DILTIAZEM [Concomitant]
  11. MULTIVITAMIN [Concomitant]

REACTIONS (2)
  - RESPIRATORY TRACT CONGESTION [None]
  - LOWER RESPIRATORY TRACT INFECTION [None]
